FAERS Safety Report 10145606 (Version 2)
Quarter: 2014Q2

REPORT INFORMATION
  Report Type: Spontaneous
  Country: PL (occurrence: PL)
  Receive Date: 20140501
  Receipt Date: 20140520
  Transmission Date: 20141212
  Serious: Yes (Other)
  Sender: FDA-Public Use
  Company Number: PL-BAYER-2014-062431

PATIENT
  Age: 28 Year
  Sex: Female

DRUGS (3)
  1. INTERFERON BETA - 1B [Suspect]
     Indication: MULTIPLE SCLEROSIS
     Dosage: UNK
     Dates: start: 200410
  2. MITOXANTRONE [Concomitant]
  3. NATALIZUMAB [Concomitant]
     Dosage: UNK

REACTIONS (2)
  - Multiple sclerosis relapse [None]
  - Multiple sclerosis relapse [None]
